FAERS Safety Report 10024650 (Version 1)
Quarter: 2014Q1

REPORT INFORMATION
  Report Type: Spontaneous
  Country: US (occurrence: None)
  Receive Date: 20140319
  Receipt Date: 20140319
  Transmission Date: 20141002
  Serious: Yes (Other)
  Sender: FDA-Public Use
  Company Number: None

PATIENT
  Age: 12 Year
  Sex: Male
  Weight: 38 kg

DRUGS (18)
  1. POLYMYXIN B [Suspect]
     Indication: CYSTIC FIBROSIS
     Route: 042
     Dates: start: 20140306, end: 20140306
  2. POLYMYXIN B [Suspect]
     Indication: CONDITION AGGRAVATED
     Route: 042
     Dates: start: 20140306, end: 20140306
  3. ZOSYN [Concomitant]
  4. SULFAMETHOXAZOLE/TRIMETHOPRIM [Concomitant]
  5. ALBUTEROL [Concomitant]
  6. DICYCLOMINE [Concomitant]
  7. DORNASE [Concomitant]
  8. ESOMEPRAZOLE [Concomitant]
  9. MESALAMINE [Concomitant]
  10. METRONIDAZOLE [Concomitant]
  11. URSODIOL [Concomitant]
  12. MULTIVITAMIN [Concomitant]
  13. PANCRELIPASE [Concomitant]
  14. PREDNISONE [Concomitant]
  15. TOBRAMYCIN [Concomitant]
  16. IBUPROFEN [Concomitant]
  17. ONDANSETRON [Concomitant]
  18. POLYMYXIN B [Suspect]
     Route: 042
     Dates: start: 20140306, end: 20140306

REACTIONS (1)
  - Paraesthesia oral [None]
